FAERS Safety Report 8518329-4 (Version None)
Quarter: 2012Q3

REPORT INFORMATION
  Report Type: 
  Country: None (occurrence: None)
  Receive Date: 20120718
  Receipt Date: 20120130
  Transmission Date: 20120928
  Serious: No
  Sender: FDA-Public Use
  Company Number: US-BRISTOL-MYERS SQUIBB COMPANY-16373870

PATIENT
  Sex: Female

DRUGS (2)
  1. PLAVIX [Suspect]
  2. COUMADIN [Suspect]

REACTIONS (2)
  - BLOOD URINE PRESENT [None]
  - CONTUSION [None]
